FAERS Safety Report 10359928 (Version 2)
Quarter: 2014Q4

REPORT INFORMATION
  Report Type: Spontaneous
  Country: US (occurrence: US)
  Receive Date: 20140804
  Receipt Date: 20141010
  Transmission Date: 20150528
  Serious: Yes (Hospitalization)
  Sender: FDA-Public Use
  Company Number: US-PFIZER INC-2014215483

PATIENT
  Age: 14 Year
  Sex: Male

DRUGS (2)
  1. SERTRALINE [Concomitant]
     Active Substance: SERTRALINE HYDROCHLORIDE
     Indication: DEPRESSION
     Dosage: 100 MG, UNK
     Dates: start: 20140521
  2. QUILLIVANT XR [Suspect]
     Active Substance: METHYLPHENIDATE HYDROCHLORIDE
     Indication: ATTENTION DEFICIT/HYPERACTIVITY DISORDER
     Dosage: 5 ML (WHICH IS EQUIVALENT TO 25 MG), 1X/DAY
     Route: 048
     Dates: start: 20140521

REACTIONS (5)
  - Palpitations [Unknown]
  - Drug abuse [Recovered/Resolved with Sequelae]
  - Lymphocyte count decreased [Unknown]
  - Accidental overdose [Recovered/Resolved with Sequelae]
  - Neutrophil count increased [Unknown]

NARRATIVE: CASE EVENT DATE: 201407
